FAERS Safety Report 4538056-8 (Version None)
Quarter: 2004Q4

REPORT INFORMATION
  Report Type: 
  Country: None (occurrence: None)
  Receive Date: 20041223
  Receipt Date: 20041223
  Transmission Date: 20050328
  Serious: Yes (Other)
  Sender: FDA-Public Use
  Company Number: None

PATIENT
  Age: 54 Year
  Sex: Female

DRUGS (3)
  1. OMEPRAZOLE [Suspect]
     Indication: GASTROOESOPHAGEAL REFLUX DISEASE
     Dosage: ONE BY MOUTH DAILY
     Route: 048
     Dates: start: 20041216, end: 20041222
  2. CLARINEX [Concomitant]
  3. ZOCOR [Concomitant]

REACTIONS (2)
  - CHEST PAIN [None]
  - HYPERCHLORHYDRIA [None]
